FAERS Safety Report 5271366-8 (Version None)
Quarter: 2007Q1

REPORT INFORMATION
  Report Type: 
  Country: None (occurrence: None)
  Receive Date: 20070321
  Receipt Date: 20070313
  Transmission Date: 20070707
  Serious: Yes (Hospitalization)
  Sender: FDA-Public Use
  Company Number: US-SANOFI-SYNTHELABO-F03200700059

PATIENT
  Age: 81 Year
  Sex: Female

DRUGS (2)
  1. DOCETAXEL [Suspect]
     Route: 042
     Dates: start: 20070122, end: 20070122
  2. OXALIPLATIN [Suspect]
     Route: 042
     Dates: start: 20070116, end: 20070116

REACTIONS (1)
  - OESOPHAGITIS [None]
